FAERS Safety Report 9915510 (Version 2)
Quarter: 2014Q1

REPORT INFORMATION
  Report Type: Report from Study
  Country: US (occurrence: US)
  Receive Date: 20140221
  Receipt Date: 20140228
  Transmission Date: 20141002
  Serious: Yes (Hospitalization)
  Sender: FDA-Public Use
  Company Number: US-BRISTOL-MYERS SQUIBB COMPANY-20193991

PATIENT
  Age: 57 Year
  Sex: Female

DRUGS (11)
  1. PACLITAXEL [Suspect]
     Indication: BREAST CANCER METASTATIC
     Dosage: LAST DOSE ON 24JUL2013
     Route: 042
     Dates: start: 20130507
  2. LEVOXYL [Concomitant]
     Indication: HYPOTHYROIDISM
     Route: 048
     Dates: start: 1996
  3. VENLAFAXINE HCL [Concomitant]
     Indication: HOT FLUSH
     Dosage: 2010-ONG
     Route: 048
     Dates: start: 2006
  4. VENLAFAXINE HCL [Concomitant]
     Indication: ANXIETY
     Dosage: 2010-ONG
     Route: 048
     Dates: start: 2006
  5. LORAZEPAM [Concomitant]
     Indication: ANXIETY
     Route: 048
     Dates: start: 2006
  6. VITAMIN B12 [Concomitant]
     Route: 048
  7. BIOTIN [Concomitant]
  8. FLONASE [Concomitant]
     Indication: SEASONAL ALLERGY
     Dosage: 1DF=UNITS NOS
     Route: 045
     Dates: start: 2002
  9. SALINE [Concomitant]
     Indication: DRY EYE
     Dosage: 1DF=UNITS NOS
     Dates: start: 2006
  10. ZYRTEC [Concomitant]
     Indication: SEASONAL ALLERGY
     Route: 048
     Dates: start: 20130510
  11. GRANISETRON [Concomitant]
     Indication: PREMEDICATION
     Dosage: LAST DOSE: 24JUL2013
     Route: 042
     Dates: start: 20130605

REACTIONS (1)
  - Pyrexia [Recovered/Resolved]
